FAERS Safety Report 8173078-X (Version None)
Quarter: 2012Q1

REPORT INFORMATION
  Report Type: 
  Country: None (occurrence: None)
  Receive Date: 20120229
  Receipt Date: 20120223
  Transmission Date: 20120608
  Serious: Yes (Other)
  Sender: FDA-Public Use
  Company Number: US-B.I. PHARMACEUTICALS,INC./RIDGEFIELD-2012-BP-03536BP

PATIENT
  Sex: Female

DRUGS (5)
  1. AGGRENOX [Suspect]
     Indication: PROPHYLAXIS
     Route: 048
     Dates: start: 20100101, end: 20120221
  2. ENOXAPARIN [Concomitant]
     Indication: TRANSIENT ISCHAEMIC ATTACK
     Route: 058
     Dates: start: 20120222
  3. SIMVASTATIN [Concomitant]
     Indication: BLOOD CHOLESTEROL INCREASED
     Route: 048
  4. ATENOLOL [Concomitant]
     Indication: HYPERTENSION
     Route: 048
  5. TRAMADOL HCL [Concomitant]
     Indication: BACK PAIN
     Route: 048

REACTIONS (5)
  - FATIGUE [None]
  - INTERVERTEBRAL DISC PROTRUSION [None]
  - ASTHENIA [None]
  - AORTIC ANEURYSM [None]
  - MALAISE [None]
